FAERS Safety Report 9724061 (Version 4)
Quarter: 2015Q4

REPORT INFORMATION
  Report Type: Spontaneous
  Country: US (occurrence: US)
  Receive Date: 20131202
  Receipt Date: 20151028
  Transmission Date: 20160305
  Serious: No
  Sender: FDA-Public Use
  Company Number: US-AMGEN-USASP2013078704

PATIENT
  Age: 45 Year
  Sex: Female

DRUGS (2)
  1. ENBREL [Suspect]
     Active Substance: ETANERCEPT
     Indication: PSORIASIS
     Dosage: 50 MG, 2 TIMES/WK
     Route: 065
     Dates: start: 20130801
  2. ENBREL [Suspect]
     Active Substance: ETANERCEPT
     Indication: RHEUMATOID ARTHRITIS

REACTIONS (11)
  - Hepatic enzyme increased [Not Recovered/Not Resolved]
  - Skin haemorrhage [Unknown]
  - Injection site haemorrhage [Recovered/Resolved]
  - Headache [Not Recovered/Not Resolved]
  - Injection site erythema [Recovered/Resolved]
  - Scar [Not Recovered/Not Resolved]
  - Vomiting [Not Recovered/Not Resolved]
  - Psoriasis [Unknown]
  - Memory impairment [Not Recovered/Not Resolved]
  - Injection site bruising [Recovered/Resolved]
  - Injection site pain [Not Recovered/Not Resolved]

NARRATIVE: CASE EVENT DATE: 201308
